FAERS Safety Report 21528944 (Version 1)
Quarter: 2022Q4

REPORT INFORMATION
  Report Type: Spontaneous
  Country: US (occurrence: US)
  Receive Date: 20221031
  Receipt Date: 20221031
  Transmission Date: 20230113
  Serious: No
  Sender: FDA-Public Use
  Company Number: US-PFIZER INC-202201258955

PATIENT

DRUGS (2)
  1. GLUCOTROL [Suspect]
     Active Substance: GLIPIZIDE
     Dosage: UNK
  2. GLIPIZIDE [Suspect]
     Active Substance: GLIPIZIDE
     Dosage: UNK

REACTIONS (3)
  - Hypoglycaemia [Unknown]
  - Drug screen positive [Unknown]
  - Toxicity to various agents [Unknown]
